FAERS Safety Report 6974948-8 (Version None)
Quarter: 2010Q3

REPORT INFORMATION
  Report Type: 
  Country: None (occurrence: None)
  Receive Date: 20100909
  Receipt Date: 20090105
  Transmission Date: 20110219
  Serious: No
  Sender: FDA-Public Use
  Company Number: US-WYE-H07537909

PATIENT
  Age: 67 Year
  Sex: Male

DRUGS (5)
  1. PRISTIQ [Suspect]
     Indication: DEPRESSION
     Route: 048
     Dates: start: 20081101, end: 20081201
  2. MICARDIS [Concomitant]
  3. MELOXICAM [Concomitant]
  4. PRAVASTATIN [Concomitant]
  5. LEVITRA [Concomitant]

REACTIONS (2)
  - ANORGASMIA [None]
  - NIGHTMARE [None]
